FAERS Safety Report 4617232-X (Version None)
Quarter: 2005Q1

REPORT INFORMATION
  Report Type: 
  Country: None (occurrence: None)
  Receive Date: 20050323
  Receipt Date: 20050322
  Transmission Date: 20050727
  Serious: Yes (Other)
  Sender: FDA-Public Use
  Company Number: PHBS2005NL04093

PATIENT
  Age: 55 Year
  Sex: Male

DRUGS (2)
  1. TERBINAFINE HCL [Suspect]
     Indication: TINEA PEDIS
     Dates: start: 20050307, end: 20050308
  2. DEPAKENE [Suspect]
     Dosage: 500 MG, BID
     Dates: start: 20010807

REACTIONS (4)
  - DISORIENTATION [None]
  - DRUG INTERACTION [None]
  - EPILEPSY [None]
  - LOSS OF CONSCIOUSNESS [None]
